FAERS Safety Report 4472351-6 (Version None)
Quarter: 2004Q4

REPORT INFORMATION
  Report Type: 
  Country: None (occurrence: None)
  Receive Date: 20041007
  Receipt Date: 20040924
  Transmission Date: 20050328
  Serious: Yes (Other)
  Sender: FDA-Public Use
  Company Number: 2004053601

PATIENT
  Age: 80 Year
  Sex: Male
  Weight: 83.9154 kg

DRUGS (8)
  1. TIKOSYN [Suspect]
     Indication: ATRIAL FIBRILLATION
     Dosage: 125 MCG (125 MCG, 1 IN 1 D)
     Dates: start: 20020701
  2. ENALAPRIL MALEATE [Concomitant]
  3. CARVEDILOL [Concomitant]
  4. DIGOXIN [Concomitant]
  5. ATORVASTATIN (ATORVASTATIN) [Concomitant]
  6. CETIRIZINE HCL [Concomitant]
  7. UNKNOWN NASAL SPRAYS (NASAL PREPARATIONS) [Concomitant]
  8. WARFARIN SODIUM [Concomitant]

REACTIONS (9)
  - ABASIA [None]
  - ATRIAL FIBRILLATION [None]
  - CONDITION AGGRAVATED [None]
  - DIZZINESS [None]
  - DYSPNOEA [None]
  - HYPOAESTHESIA [None]
  - HYPOAESTHESIA ORAL [None]
  - MOVEMENT DISORDER [None]
  - PARAESTHESIA [None]
